FAERS Safety Report 9077988 (Version 1)
Quarter: 2013Q1

REPORT INFORMATION
  Report Type: Report from Study
  Country: US (occurrence: US)
  Receive Date: 20130130
  Receipt Date: 20130130
  Transmission Date: 20140127
  Serious: No
  Sender: FDA-Public Use
  Company Number: US-ABBOTT-12P-163-0967042-00

PATIENT
  Age: 59 Year
  Sex: Female

DRUGS (10)
  1. HUMIRA 40 MG/0.8 ML PEN [Suspect]
     Indication: PSORIASIS
     Dates: start: 201111
  2. TRICOR [Concomitant]
     Indication: BLOOD CHOLESTEROL
     Dosage: DAILY
  3. LISINOPRIL [Concomitant]
     Indication: BLOOD PRESSURE
     Dosage: DAILY
  4. CITALOPRAM [Concomitant]
     Indication: ANXIETY
     Dosage: DAILY
  5. ATENOLOL [Concomitant]
     Indication: THYROID DISORDER
     Dosage: DAILY
  6. FLUID PILL [Concomitant]
     Indication: DIURETIC THERAPY
     Dosage: DAILY
  7. LANTUS [Concomitant]
     Indication: DIABETES MELLITUS
     Dosage: NIGHTLY
  8. METFORMIN [Concomitant]
     Indication: DIABETES MELLITUS
  9. POPIDOGREN [Concomitant]
     Indication: COLITIS
     Dosage: 4 TABLETS DAILY
  10. APRISO [Concomitant]
     Indication: COLITIS
     Dosage: DAILY

REACTIONS (5)
  - Unevaluable event [Not Recovered/Not Resolved]
  - Skin disorder [Not Recovered/Not Resolved]
  - Skin exfoliation [Not Recovered/Not Resolved]
  - Stress [Unknown]
  - Drug dose omission [Unknown]
